FAERS Safety Report 10094642 (Version 1)
Quarter: 2014Q2

REPORT INFORMATION
  Report Type: Spontaneous
  Country: US (occurrence: None)
  Receive Date: 20140411
  Receipt Date: 20140411
  Transmission Date: 20141212
  Serious: No
  Sender: FDA-Public Use
  Company Number: 2013US002916

PATIENT
  Age: 53 Year
  Sex: Female

DRUGS (7)
  1. ICLUSIG (PONATINIB) TABLET, 15MG [Suspect]
     Indication: CHRONIC MYELOID LEUKAEMIA
     Route: 048
     Dates: start: 20130118
  2. MULTIVITAMINS [Concomitant]
  3. SYNTHROID (LEVOTHYROXINE SODIUM) [Concomitant]
  4. LEXAPRO (ESCITALOPRAM OXALATE) [Concomitant]
  5. AMBIEN (ZOLPIDEM TARTRATE) [Concomitant]
  6. NAPROXEN (NAPROXEN) [Concomitant]
  7. VITAMIN B 12 (VITAMIN B NOS) [Concomitant]

REACTIONS (1)
  - Rash [None]
